FAERS Safety Report 6249948-6 (Version None)
Quarter: 2009Q2

REPORT INFORMATION
  Report Type: 
  Country: None (occurrence: None)
  Receive Date: 20090625
  Receipt Date: 20090617
  Transmission Date: 20091009
  Serious: No
  Sender: FDA-Public Use
  Company Number: 20096953

PATIENT
  Sex: Female

DRUGS (1)
  1. LIORESAL [Suspect]
     Dosage: 12 MCG, DAILY, INTRATHECAL
     Route: 037

REACTIONS (3)
  - CATHETER SITE RELATED REACTION [None]
  - DRUG EFFECT DECREASED [None]
  - PSEUDOMENINGOCELE [None]
